FAERS Safety Report 8131327-8 (Version None)
Quarter: 2012Q1

REPORT INFORMATION
  Report Type: 
  Country: None (occurrence: None)
  Receive Date: 20120210
  Receipt Date: 20120210
  Transmission Date: 20120608
  Serious: Yes (Life-Threatening, Hospitalization)
  Sender: FDA-Public Use
  Company Number: None

PATIENT
  Age: 75 Year
  Sex: Male
  Weight: 63 kg

DRUGS (2)
  1. OXYCODONE HCL [Suspect]
     Indication: PAIN
     Dosage: 5MG BID PO
     Route: 048
     Dates: start: 20100423
  2. LORAZEPAM [Suspect]
     Indication: ANXIETY
     Dosage: 1 MG TID PO
     Route: 048

REACTIONS (4)
  - SEDATION [None]
  - VOMITING [None]
  - NAUSEA [None]
  - FATIGUE [None]
